FAERS Safety Report 4676781-9 (Version None)
Quarter: 2005Q2

REPORT INFORMATION
  Report Type: 
  Country: None (occurrence: None)
  Receive Date: 20050527
  Receipt Date: 20050127
  Transmission Date: 20051028
  Serious: Yes (Death, Hospitalization)
  Sender: FDA-Public Use
  Company Number: US-MERCK-0501USA04293

PATIENT
  Age: 75 Year
  Sex: Female
  Weight: 45 kg

DRUGS (13)
  1. VIOXX [Suspect]
     Indication: BACK PAIN
     Route: 048
     Dates: start: 20020702, end: 20030105
  2. VIOXX [Suspect]
     Indication: OSTEOARTHRITIS
     Route: 048
     Dates: start: 20020702, end: 20030105
  3. DIOVAN [Concomitant]
     Route: 065
  4. OS-CAL [Concomitant]
     Route: 065
  5. XANAX [Concomitant]
     Route: 065
  6. SYNTHROID [Concomitant]
     Route: 065
  7. DARVOCET-N 100 [Concomitant]
     Route: 065
  8. FOSAMAX [Concomitant]
     Route: 065
  9. LEVOXYL [Concomitant]
     Route: 065
  10. NEURONTIN [Concomitant]
     Route: 065
  11. OXYCODONE [Concomitant]
     Route: 065
  12. ALPRAZOLAM [Concomitant]
     Route: 065
  13. NORVASC [Concomitant]
     Route: 065

REACTIONS (28)
  - ACIDOSIS [None]
  - ACTIVATED PARTIAL THROMBOPLASTIN TIME PROLONGED [None]
  - ARTERIAL OCCLUSIVE DISEASE [None]
  - ARTERIAL SPASM [None]
  - ATHEROSCLEROSIS [None]
  - BRADYCARDIA [None]
  - CARDIAC ARREST [None]
  - CARDIO-RESPIRATORY ARREST [None]
  - CATHETER RELATED COMPLICATION [None]
  - DEEP VEIN THROMBOSIS [None]
  - DISSEMINATED INTRAVASCULAR COAGULATION [None]
  - FRACTURED SACRUM [None]
  - HAEMATOCRIT DECREASED [None]
  - HAEMOGLOBIN DECREASED [None]
  - HYPERKALAEMIA [None]
  - HYPOAESTHESIA [None]
  - HYPOTENSION [None]
  - INTERMITTENT CLAUDICATION [None]
  - INTERNATIONAL NORMALISED RATIO INCREASED [None]
  - LIMB INJURY [None]
  - NEUROPATHY [None]
  - PERIPHERAL ISCHAEMIA [None]
  - PLATELET COUNT DECREASED [None]
  - PULSE ABSENT [None]
  - RAYNAUD'S PHENOMENON [None]
  - RENAL TUBULAR NECROSIS [None]
  - REPERFUSION INJURY [None]
  - WHITE BLOOD CELL COUNT INCREASED [None]
